FAERS Safety Report 7111248-X (Version None)
Quarter: 2010Q4

REPORT INFORMATION
  Report Type: 
  Country: None (occurrence: None)
  Receive Date: 20101118
  Receipt Date: 20091122
  Transmission Date: 20110411
  Serious: Yes (Other)
  Sender: FDA-Public Use
  Company Number: US-PFIZER INC-2009281003

PATIENT
  Sex: Female
  Weight: 138.32 kg

DRUGS (6)
  1. ZYVOX [Suspect]
     Indication: SKIN ULCER
     Dosage: FREQUENCY: 2X/DAY,
     Dates: start: 20090921
  2. PLAVIX [Concomitant]
     Dosage: UNK
  3. NAPROXEN SODIUM [Concomitant]
     Dosage: UNK
  4. PRANDIN [Concomitant]
     Dosage: UNK
  5. GLIMEPIRIDE [Concomitant]
     Dosage: UNK
  6. ACETYLSALICYLIC ACID [Concomitant]
     Dosage: 81 MG, UNK

REACTIONS (4)
  - DYSPEPSIA [None]
  - HEADACHE [None]
  - HYPERTENSION [None]
  - NAUSEA [None]
